FAERS Safety Report 7198617-7 (Version None)
Quarter: 2010Q4

REPORT INFORMATION
  Report Type: 
  Country: None (occurrence: None)
  Receive Date: 20101227
  Receipt Date: 20101130
  Transmission Date: 20110411
  Serious: No
  Sender: FDA-Public Use
  Company Number: US-ABBOTT-10P-163-0688503-00

PATIENT
  Sex: Male
  Weight: 69.916 kg

DRUGS (4)
  1. LUPRON DEPOT [Suspect]
     Indication: PROSTATE CANCER
     Route: 050
     Dates: start: 20100601, end: 20100601
  2. LUPRON DEPOT [Suspect]
     Indication: PROSTATE CANCER
     Route: 050
     Dates: start: 20101001, end: 20101001
  3. LUPRON DEPOT [Suspect]
     Route: 050
  4. LISINOPRIL [Concomitant]
     Indication: MYOCARDIAL INFARCTION
     Route: 048
     Dates: start: 20060101, end: 20101101

REACTIONS (10)
  - ARTHRALGIA [None]
  - DECREASED APPETITE [None]
  - DEPRESSION [None]
  - INJECTION SITE ABSCESS [None]
  - INSOMNIA [None]
  - NAUSEA [None]
  - OEDEMA PERIPHERAL [None]
  - PAIN IN EXTREMITY [None]
  - PRODUCTIVE COUGH [None]
  - VOMITING [None]
